FAERS Safety Report 7397625-0 (Version None)
Quarter: 2011Q2

REPORT INFORMATION
  Report Type: 
  Country: None (occurrence: None)
  Receive Date: 20110406
  Receipt Date: 20110331
  Transmission Date: 20111010
  Serious: Yes (Other)
  Sender: FDA-Public Use
  Company Number: US-PFIZER INC-2010173093

PATIENT
  Sex: Female
  Weight: 97 kg

DRUGS (11)
  1. GEODON [Suspect]
     Indication: PARANOIA
     Dosage: 160 MG, 1X/DAY
     Route: 048
  2. NEXIUM [Concomitant]
     Indication: REFLUX OESOPHAGITIS
     Dosage: 40 MG OR 80 MG
     Route: 048
  3. VISTARIL [Concomitant]
     Indication: SLEEP DISORDER
     Dosage: UNK
  4. MUCINEX [Interacting]
     Indication: NASOPHARYNGITIS
     Dosage: 1200 MG, 2X/DAY
     Route: 048
     Dates: start: 20110301
  5. NEXIUM [Concomitant]
     Indication: HIATUS HERNIA
  6. GLUCOPHAGE [Concomitant]
     Dosage: UNK
     Route: 048
  7. GEODON [Interacting]
     Dosage: 60 MG, 1X/DAY
     Route: 048
  8. TIAZAC [Concomitant]
     Indication: HYPERTENSION
     Dosage: UNK
  9. GEODON [Interacting]
     Indication: SCHIZOPHRENIA
     Dosage: 40 MG, 1X/DAY
     Route: 048
     Dates: start: 19980101
  10. SYNTHROID [Concomitant]
     Indication: THYROID DISORDER
     Dosage: UNK
     Route: 048
  11. MUCINEX [Interacting]
     Dosage: 1200 MG, 1X/DAY
     Dates: start: 20110301

REACTIONS (9)
  - INCORRECT DOSE ADMINISTERED [None]
  - FEELING ABNORMAL [None]
  - DRUG INTERACTION [None]
  - FALL [None]
  - NASOPHARYNGITIS [None]
  - DYSKINESIA [None]
  - TREMOR [None]
  - DRUG TOLERANCE [None]
  - STRESS [None]
